FAERS Safety Report 10877961 (Version 1)
Quarter: 2015Q1

REPORT INFORMATION
  Report Type: Report from Study
  Country: US (occurrence: US)
  Receive Date: 20150302
  Receipt Date: 20150302
  Transmission Date: 20150721
  Serious: No
  Sender: FDA-Public Use
  Company Number: US-ABBVIE-14K-163-1277071-00

PATIENT
  Sex: Male
  Weight: 104.42 kg

DRUGS (8)
  1. ANDROGEL [Suspect]
     Active Substance: TESTOSTERONE
     Indication: BLOOD TESTOSTERONE DECREASED
     Route: 061
     Dates: start: 2006, end: 201406
  2. CORTEF [Concomitant]
     Active Substance: HYDROCORTISONE
     Indication: BLOOD CORTISOL DECREASED
  3. UNKNOWN MEDICATION [Concomitant]
     Active Substance: UNSPECIFIED INGREDIENT
     Indication: HYPERTENSION
  4. MORPHINE [Concomitant]
     Active Substance: MORPHINE
     Indication: ARTHRALGIA
  5. ANDROGEL [Suspect]
     Active Substance: TESTOSTERONE
     Indication: BLOOD TESTOSTERONE DECREASED
     Route: 061
     Dates: start: 201406
  6. GALACATOLOSE [Concomitant]
     Indication: PRODUCT USED FOR UNKNOWN INDICATION
  7. SYNTHROID [Concomitant]
     Active Substance: LEVOTHYROXINE SODIUM
     Indication: HYPOTHYROIDISM
  8. VITAMIN D [Concomitant]
     Active Substance: CHOLECALCIFEROL
     Indication: VITAMIN D DEFICIENCY

REACTIONS (2)
  - Asthenia [Not Recovered/Not Resolved]
  - Rash pruritic [Not Recovered/Not Resolved]
